FAERS Safety Report 16165883 (Version 1)
Quarter: 2019Q2

REPORT INFORMATION
  Report Type: Spontaneous
  Country: DE (occurrence: DE)
  Receive Date: 20190406
  Receipt Date: 20190406
  Transmission Date: 20190711
  Serious: Yes (Congenital Anomaly)
  Sender: FDA-Public Use
  Company Number: DE-ACCORD-118269

PATIENT
  Sex: Male
  Weight: 2.93 kg

DRUGS (6)
  1. FEMIBION PREGNANCY 1 [Concomitant]
     Indication: PROPHYLAXIS OF NEURAL TUBE DEFECT
     Dosage: 0.8 (MG/D )
     Route: 064
     Dates: start: 20171009, end: 20180703
  2. PROGESTAN [Concomitant]
     Active Substance: PROGESTERONE
     Indication: ASSISTED FERTILISATION
     Dosage: 600 (MG/D (3 X 200 MG/D) )
     Route: 064
  3. DEKRISTOL [Concomitant]
     Active Substance: CHOLECALCIFEROL
     Indication: VITAMIN D DEFICIENCY
     Dosage: 2000 (I.E./D (BIS 1000 I.E./D) )
     Route: 064
  4. PROGYNOVA [Concomitant]
     Active Substance: ESTRADIOL VALERATE
     Indication: ASSISTED FERTILISATION
     Dosage: 3 (MG/D (3 X 1 MG/D) )
     Route: 064
  5. ESCITALOPRAM [Suspect]
     Active Substance: ESCITALOPRAM OXALATE
     Indication: DEPRESSION
     Dosage: 20 (MG/D )
     Route: 064
     Dates: start: 20171009, end: 20180703
  6. LEVOTHYROXINE. [Concomitant]
     Active Substance: LEVOTHYROXINE
     Indication: HYPOTHYROIDISM
     Dosage: 112 (UG/D (BIS 75 UG/D))
     Route: 064
     Dates: start: 20171009, end: 20180703

REACTIONS (2)
  - Congenital hydronephrosis [Not Recovered/Not Resolved]
  - Foetal exposure during pregnancy [Unknown]
